FAERS Safety Report 7822116-X (Version None)
Quarter: 2011Q4

REPORT INFORMATION
  Report Type: 
  Country: None (occurrence: None)
  Receive Date: 20111018
  Receipt Date: 20111007
  Transmission Date: 20120403
  Serious: Yes (Hospitalization)
  Sender: FDA-Public Use
  Company Number: US-CELGENEUS-163-21880-11101001

PATIENT
  Sex: Male

DRUGS (9)
  1. FUROSEMIDE [Concomitant]
     Route: 065
  2. NOVOLIN 70/30 [Concomitant]
     Route: 065
  3. FINASTERIDE [Concomitant]
     Route: 065
  4. LUTEIN [Concomitant]
     Route: 065
  5. TETRACYCLINE [Concomitant]
     Route: 065
  6. ASPIRIN [Concomitant]
     Route: 065
  7. BILBERRY [Concomitant]
     Route: 065
  8. REVLIMID [Suspect]
     Dosage: 25 MILLIGRAM
     Route: 048
     Dates: start: 20110404
  9. DIGOXIN [Concomitant]
     Route: 065

REACTIONS (1)
  - HAEMORRHAGE [None]
